FAERS Safety Report 9643614 (Version 2)
Quarter: 2013Q4

REPORT INFORMATION
  Report Type: Spontaneous
  Country: AU (occurrence: AU)
  Receive Date: 20131024
  Receipt Date: 20131125
  Transmission Date: 20140711
  Serious: Yes (Hospitalization)
  Sender: FDA-Public Use
  Company Number: AU-GLAXOSMITHKLINE-B0934770A

PATIENT
  Sex: Male

DRUGS (2)
  1. VOTRIENT [Suspect]
     Indication: METASTATIC RENAL CELL CARCINOMA
     Route: 065
  2. ANALGESIC [Concomitant]
     Indication: CANCER PAIN

REACTIONS (4)
  - Haemoptysis [Unknown]
  - Coagulation test abnormal [Unknown]
  - Pleural effusion [Unknown]
  - Blood fibrinogen increased [Unknown]
